FAERS Safety Report 7396669-2 (Version None)
Quarter: 2011Q2

REPORT INFORMATION
  Report Type: 
  Country: None (occurrence: None)
  Receive Date: 20110406
  Receipt Date: 20110330
  Transmission Date: 20111010
  Serious: Yes (Death)
  Sender: FDA-Public Use
  Company Number: PHHY2011US26416

PATIENT
  Sex: Male
  Weight: 77.098 kg

DRUGS (1)
  1. EXJADE [Suspect]
     Indication: ESSENTIAL THROMBOCYTHAEMIA
     Dosage: 1250 MG, DAILY
     Route: 048
     Dates: start: 20070313

REACTIONS (2)
  - THROMBOCYTOPENIA [None]
  - GASTROINTESTINAL HAEMORRHAGE [None]
